FAERS Safety Report 10286286 (Version 6)
Quarter: 2015Q4

REPORT INFORMATION
  Report Type: Report from Study
  Country: US (occurrence: US)
  Receive Date: 20140703
  Receipt Date: 20151201
  Transmission Date: 20160304
  Serious: Yes (Hospitalization, Other)
  Sender: FDA-Public Use
  Company Number: 2014MPI00409

PATIENT

DRUGS (5)
  1. DACARBAZINE. [Suspect]
     Active Substance: DACARBAZINE
     Indication: HODGKIN^S DISEASE
     Dosage: 375 MG/M2, UNK
     Route: 042
     Dates: start: 20140128, end: 20140325
  2. DOXORUBICIN [Suspect]
     Active Substance: DOXORUBICIN
     Indication: HODGKIN^S DISEASE
     Dosage: 25 MG/M2, Q14D
     Route: 042
     Dates: start: 20140128, end: 20140325
  3. DOXORUBICIN [Suspect]
     Active Substance: DOXORUBICIN
     Indication: HODGKIN^S DISEASE
  4. VINBLASTINE [Suspect]
     Active Substance: VINBLASTINE
     Indication: HODGKIN^S DISEASE
     Dosage: 6 MG/M2, Q14D
     Route: 042
     Dates: start: 20140128, end: 20140325
  5. BRENTUXIMAB VEDOTIN [Suspect]
     Active Substance: BRENTUXIMAB VEDOTIN
     Indication: HODGKIN^S DISEASE
     Dosage: 1.2 MG/KG, Q14D
     Route: 042
     Dates: start: 20140128, end: 20140325

REACTIONS (27)
  - Upper respiratory tract infection [None]
  - Neutropenia [None]
  - Alanine aminotransferase increased [None]
  - Blood glucose increased [None]
  - Atypical pneumonia [None]
  - Pulmonary oedema [None]
  - Organising pneumonia [None]
  - Acute respiratory distress syndrome [None]
  - Arthralgia [None]
  - Atelectasis [None]
  - Pseudomonas test positive [None]
  - Pain in extremity [None]
  - Insomnia [None]
  - Monocyte count decreased [None]
  - Pneumocystis jirovecii pneumonia [None]
  - Normochromic normocytic anaemia [None]
  - Cellulitis [None]
  - Hyponatraemia [None]
  - Fluid overload [None]
  - Respiratory failure [Recovered/Resolved]
  - Blood lactate dehydrogenase increased [None]
  - Aspartate aminotransferase increased [None]
  - Blood potassium increased [None]
  - Herpes simplex [None]
  - Lower respiratory tract inflammation [None]
  - Toxicity to various agents [None]
  - Pulmonary alveolar haemorrhage [None]

NARRATIVE: CASE EVENT DATE: 20140404
